FAERS Safety Report 4296070-4 (Version None)
Quarter: 2004Q1

REPORT INFORMATION
  Report Type: 
  Country: None (occurrence: None)
  Receive Date: 20040212
  Receipt Date: 20040206
  Transmission Date: 20041129
  Serious: Yes (Other)
  Sender: FDA-Public Use
  Company Number: K200400089

PATIENT
  Age: 35 Year
  Sex: Male

DRUGS (2)
  1. ALTACE [Suspect]
     Indication: BLOOD PRESSURE
     Dosage: 5 MG, QD, ORAL
     Route: 048
     Dates: start: 20001201
  2. ACETAMINOPHEN [Concomitant]

REACTIONS (2)
  - JAUNDICE [None]
  - LIVER FUNCTION TEST ABNORMAL [None]
